FAERS Safety Report 6734530-4 (Version None)
Quarter: 2010Q2

REPORT INFORMATION
  Report Type: 
  Country: None (occurrence: None)
  Receive Date: 20100520
  Receipt Date: 20100507
  Transmission Date: 20101027
  Serious: Yes (Hospitalization)
  Sender: FDA-Public Use
  Company Number: US-ELI_LILLY_AND_COMPANY-US201005002901

PATIENT
  Sex: Female

DRUGS (6)
  1. FORTEO [Suspect]
     Indication: OSTEOPOROSIS
     Dosage: 20 UG, DAILY (1/D)
     Dates: start: 20100312
  2. HYDROCHLOROTHIAZIDE [Concomitant]
  3. ESTRADIOL [Concomitant]
     Dosage: 1 MG, DAILY (1/D)
  4. CRESTOR /01588602/ [Concomitant]
     Dosage: 10 MEQ, DAILY (1/D)
  5. ROBAXIN [Concomitant]
     Dosage: 750 MG, AS NEEDED
  6. ANALGESICS [Concomitant]

REACTIONS (1)
  - FRACTURE NONUNION [None]
